FAERS Safety Report 11980483 (Version 4)
Quarter: 2016Q2

REPORT INFORMATION
  Report Type: Spontaneous
  Country: US (occurrence: US)
  Receive Date: 20160129
  Receipt Date: 20160613
  Transmission Date: 20160815
  Serious: No
  Sender: FDA-Public Use
  Company Number: US-PFIZER INC-2016040201

PATIENT
  Age: 57 Year
  Sex: Female
  Weight: 85.71 kg

DRUGS (3)
  1. IBRANCE [Suspect]
     Active Substance: PALBOCICLIB
     Dosage: 125 MG, CYCLIC (125 MG, CYCLIC (21 DAYS ON/ 7 DAYS OFF)
     Route: 048
     Dates: start: 20151203
  2. IBRANCE [Suspect]
     Active Substance: PALBOCICLIB
     Dosage: 125 MG, CYCLIC (21 DAYS ON/ 7 DAYS OFF)
     Route: 048
     Dates: start: 20151203
  3. IBRANCE [Suspect]
     Active Substance: PALBOCICLIB
     Indication: BREAST CANCER METASTATIC
     Dosage: 125 MG, CYCLIC (21 DAYS ON/ 7 DAYS OFF)
     Route: 048
     Dates: start: 20151203

REACTIONS (9)
  - Depression [Recovering/Resolving]
  - Pleural effusion [Unknown]
  - Gingivitis [Unknown]
  - Renal disorder [Unknown]
  - Weight decreased [Unknown]
  - Fatigue [Recovering/Resolving]
  - Diarrhoea [Unknown]
  - Decreased appetite [Unknown]
  - White blood cell count decreased [Recovered/Resolved]
